FAERS Safety Report 8774950 (Version 2)
Quarter: 2012Q4

REPORT INFORMATION
  Report Type: 
  Country: US (occurrence: US)
  Receive Date: 20120910
  Receipt Date: 20121107
  Transmission Date: 20130627
  Serious: No
  Sender: FDA-Public Use
  Company Number: US-BIOGENIDEC-2012BI035492

PATIENT
  Age: 48 Year
  Sex: Female

DRUGS (3)
  1. TYSABRI [Suspect]
     Indication: MULTIPLE SCLEROSIS
     Route: 042
     Dates: start: 20120817
  2. MORPHINE [Concomitant]
     Indication: PAIN IN EXTREMITY
  3. OXYCODONE [Concomitant]
     Indication: PAIN IN EXTREMITY

REACTIONS (1)
  - Back pain [Not Recovered/Not Resolved]
